FAERS Safety Report 6626844-3 (Version None)
Quarter: 2010Q1

REPORT INFORMATION
  Report Type: 
  Country: None (occurrence: None)
  Receive Date: 20100308
  Receipt Date: 20100224
  Transmission Date: 20100710
  Serious: Yes (Other)
  Sender: FDA-Public Use
  Company Number: 2010SP011863

PATIENT
  Sex: Male

DRUGS (5)
  1. DECA-DURABOLIN [Suspect]
     Indication: DRUG USE FOR UNKNOWN INDICATION
     Dosage: ; ONCE;
     Dates: start: 20091201
  2. DECA-DURABOLIN [Suspect]
     Indication: DRUG USE FOR UNKNOWN INDICATION
     Dosage: ; ONCE;
     Dates: start: 20100101
  3. PROSCAR [Concomitant]
  4. SUPERAMIN [Concomitant]
  5. FISIOTENS [Concomitant]

REACTIONS (1)
  - LYMPHADENOPATHY [None]
